FAERS Safety Report 4944249-8 (Version None)
Quarter: 2006Q1

REPORT INFORMATION
  Report Type: 
  Country: None (occurrence: None)
  Receive Date: 20060315
  Receipt Date: 20060309
  Transmission Date: 20060701
  Serious: Yes (Other)
  Sender: FDA-Public Use
  Company Number: PHNU2006DE01269

PATIENT
  Age: 80 Year
  Sex: Female

DRUGS (1)
  1. BENAZEPRIL HCL [Suspect]

REACTIONS (1)
  - RENAL ATROPHY [None]
